FAERS Safety Report 11240960 (Version 3)
Quarter: 2018Q3

REPORT INFORMATION
  Report Type: Spontaneous
  Country: US (occurrence: US)
  Receive Date: 20150706
  Receipt Date: 20180713
  Transmission Date: 20181010
  Serious: No
  Sender: FDA-Public Use
  Company Number: US-ASTRAZENECA-2014SE87717

PATIENT
  Age: 901 Month
  Sex: Female
  Weight: 110.2 kg

DRUGS (5)
  1. BYDUREON BCISE [Suspect]
     Active Substance: EXENATIDE
     Route: 065
  2. BYDUREON [Suspect]
     Active Substance: EXENATIDE
     Indication: TYPE 2 DIABETES MELLITUS
     Route: 058
     Dates: start: 2014
  3. BYETTA [Suspect]
     Active Substance: EXENATIDE
     Indication: TYPE 2 DIABETES MELLITUS
     Dosage: BID
     Route: 058
  4. METFORMIN [Concomitant]
     Active Substance: METFORMIN HYDROCHLORIDE
     Indication: TYPE 2 DIABETES MELLITUS
  5. GLYBURIDE. [Concomitant]
     Active Substance: GLYBURIDE
     Indication: TYPE 2 DIABETES MELLITUS

REACTIONS (15)
  - Blood glucose increased [Not Recovered/Not Resolved]
  - Malaise [Recovered/Resolved]
  - Vision blurred [Unknown]
  - Blood glucose decreased [Recovered/Resolved]
  - Feeling abnormal [Not Recovered/Not Resolved]
  - Dry eye [Unknown]
  - Injection site nodule [Unknown]
  - Drug administration error [Unknown]
  - Product quality issue [Unknown]
  - Decreased appetite [Unknown]
  - Fatigue [Not Recovered/Not Resolved]
  - Drug dose omission [Unknown]
  - Injection site pain [Unknown]
  - Glycosylated haemoglobin increased [Unknown]
  - Circumstance or information capable of leading to medication error [Unknown]

NARRATIVE: CASE EVENT DATE: 201501
